FAERS Safety Report 11831568 (Version 1)
Quarter: 2015Q4

REPORT INFORMATION
  Report Type: Spontaneous
  Country: US (occurrence: None)
  Receive Date: 20151211
  Receipt Date: 20151211
  Transmission Date: 20160305
  Serious: No
  Sender: FDA-Public Use
  Company Number: None

PATIENT
  Age: 27 Year
  Sex: Female

DRUGS (1)
  1. HUMIRA [Suspect]
     Active Substance: ADALIMUMAB
     Dosage: INJECTABLE

REACTIONS (5)
  - Headache [None]
  - Fatigue [None]
  - Injection site rash [None]
  - Injection site pain [None]
  - Nausea [None]

NARRATIVE: CASE EVENT DATE: 20151207
